FAERS Safety Report 11098683 (Version 1)
Quarter: 2015Q2

REPORT INFORMATION
  Report Type: Spontaneous
  Country: US (occurrence: US)
  Receive Date: 20150507
  Receipt Date: 20150507
  Transmission Date: 20150821
  Serious: Yes (Other)
  Sender: FDA-Public Use
  Company Number: US-RB-076776-15

PATIENT
  Age: 71 Year
  Sex: Female

DRUGS (2)
  1. MUCINEX DM [Suspect]
     Active Substance: DEXTROMETHORPHAN HYDROBROMIDE\GUAIFENESIN
     Indication: PRODUCT USED FOR UNKNOWN INDICATION
     Dosage: PATIENT TOOK LAST ON 22-APR-2015.
     Route: 048
     Dates: start: 20150422
  2. DELSYM [Suspect]
     Active Substance: DEXTROMETHORPHAN
     Indication: PRODUCT USED FOR UNKNOWN INDICATION
     Dosage: PATIENT TOOK LAST ON 22-APR-2015.
     Route: 048
     Dates: start: 20150422

REACTIONS (3)
  - Central nervous system stimulation [Unknown]
  - Inappropriate schedule of drug administration [Unknown]
  - Insomnia [Unknown]

NARRATIVE: CASE EVENT DATE: 20150422
